FAERS Safety Report 9957557 (Version 1)
Quarter: 2014Q1

REPORT INFORMATION
  Report Type: Report from Study
  Country: US (occurrence: US)
  Receive Date: 20140304
  Receipt Date: 20140304
  Transmission Date: 20141002
  Serious: No
  Sender: FDA-Public Use
  Company Number: US-ABBVIE-13P-163-1095912-00

PATIENT
  Age: 31 Year
  Sex: Female

DRUGS (5)
  1. HUMIRA [Suspect]
     Indication: CROHN^S DISEASE
     Dosage: LOADING DOSE
     Dates: start: 20130521, end: 20130521
  2. PENTASA [Concomitant]
     Indication: CROHN^S DISEASE
     Dosage: 2 TABLETS TWICE DAILY
  3. BUDESONIDE [Concomitant]
     Indication: CROHN^S DISEASE
     Dosage: IN THE MORNING
  4. DEPO PROVERA [Concomitant]
     Indication: CONTRACEPTION
  5. ALBUTEROL [Concomitant]
     Indication: ASTHMA
     Dosage: INHALER 1 OR 2 PUFFS AS NEEDED

REACTIONS (1)
  - Injection site bruising [Not Recovered/Not Resolved]
